FAERS Safety Report 6191099-3 (Version None)
Quarter: 2009Q2

REPORT INFORMATION
  Report Type: 
  Country: None (occurrence: None)
  Receive Date: 20090513
  Receipt Date: 20090513
  Transmission Date: 20091009
  Serious: Yes (Life-Threatening)
  Sender: FDA-Public Use
  Company Number: None

PATIENT
  Age: 60 Year
  Sex: Male
  Weight: 96.3 kg

DRUGS (4)
  1. PROTAMINE SULFATE [Suspect]
     Indication: ANGIOGRAM
     Dates: start: 20090508, end: 20090508
  2. PROTAMINE SULFATE [Suspect]
     Indication: ARTERIAL BYPASS OPERATION
     Dates: start: 20090508, end: 20090508
  3. PROTAMINE SULFATE [Suspect]
     Indication: CORONARY ANGIOPLASTY
     Dates: start: 20090508, end: 20090508
  4. PROTAMINE SULFATE [Suspect]
     Indication: ENDARTERECTOMY
     Dates: start: 20090508, end: 20090508

REACTIONS (2)
  - ANAPHYLACTIC REACTION [None]
  - NO THERAPEUTIC RESPONSE [None]
